FAERS Safety Report 17213401 (Version 2)
Quarter: 2024Q4

REPORT INFORMATION
  Report Type: Spontaneous
  Country: IT (occurrence: IT)
  Receive Date: 20191230
  Receipt Date: 20241226
  Transmission Date: 20250114
  Serious: Yes (Hospitalization, Other)
  Sender: PFIZER
  Company Number: IT-PFM-2019-14911

PATIENT
  Age: 56 Year
  Sex: Female

DRUGS (4)
  1. PANTOPRAZOLE SODIUM [Suspect]
     Active Substance: PANTOPRAZOLE SODIUM
     Indication: Intentional self-injury
     Dosage: UNK
     Route: 048
     Dates: start: 20191201, end: 20191201
  2. RIVOTRIL [Suspect]
     Active Substance: CLONAZEPAM
     Indication: Intentional self-injury
     Dosage: 40 MILLILITER
     Route: 048
     Dates: start: 20191201, end: 20191201
  3. AMITRIPTYLINE HYDROCHLORIDE [Suspect]
     Active Substance: AMITRIPTYLINE HYDROCHLORIDE
     Indication: Intentional self-injury
     Dosage: 40 MILLILITER
     Route: 048
     Dates: start: 20181201, end: 20181201
  4. FERROUS SULFATE [Suspect]
     Active Substance: FERROUS SULFATE
     Indication: Intentional self-injury
     Dosage: 5 DF, SINGLE
     Route: 048
     Dates: start: 20191201, end: 20191201

REACTIONS (5)
  - Coma [Recovered/Resolved]
  - Intentional overdose [Unknown]
  - Intentional self-injury [Unknown]
  - Off label use [Unknown]
  - Product use in unapproved indication [Unknown]

NARRATIVE: CASE EVENT DATE: 20191201
